FAERS Safety Report 9916391 (Version 2)
Quarter: 2014Q1

REPORT INFORMATION
  Report Type: Report from Study
  Country: US (occurrence: US)
  Receive Date: 20140221
  Receipt Date: 20140310
  Transmission Date: 20141002
  Serious: Yes (Hospitalization, Other)
  Sender: FDA-Public Use
  Company Number: US-JNJFOC-20140211818

PATIENT
  Age: 64 Year
  Sex: Female
  Weight: 87.54 kg

DRUGS (7)
  1. REMICADE [Suspect]
     Indication: COLITIS ULCERATIVE
     Route: 042
     Dates: start: 20131218, end: 20140120
  2. PREDNISONE [Concomitant]
     Indication: COLITIS ULCERATIVE
     Route: 065
     Dates: start: 201306, end: 20140131
  3. IMURAN [Concomitant]
     Indication: COLITIS ULCERATIVE
     Route: 065
     Dates: start: 201311, end: 201401
  4. FERROUS SULPHATE [Concomitant]
     Indication: ANAEMIA
     Route: 065
     Dates: start: 201311
  5. MULTIVITAMINS [Concomitant]
     Indication: ANAEMIA
     Route: 065
     Dates: start: 201311
  6. LOSARTAN [Concomitant]
     Indication: HYPERTENSION
     Route: 065
  7. LEVOTHYROXINE [Concomitant]
     Indication: HYPOTHYROIDISM
     Route: 065

REACTIONS (4)
  - Pneumonia [Recovered/Resolved]
  - Cardiomegaly [Unknown]
  - Clostridium difficile infection [Recovered/Resolved]
  - Local swelling [Not Recovered/Not Resolved]
